FAERS Safety Report 6769606-9 (Version None)
Quarter: 2010Q2

REPORT INFORMATION
  Report Type: 
  Country: None (occurrence: None)
  Receive Date: 20100610
  Receipt Date: 20100526
  Transmission Date: 20101027
  Serious: Yes (Hospitalization)
  Sender: FDA-Public Use
  Company Number: N 2010RR-33248 BCN-AS-2010-RR-177

PATIENT
  Age: 83 Year
  Sex: Female
  Weight: 63 kg

DRUGS (5)
  1. LISINOPRIL (LISINOPRIL) UNKNOWN [Suspect]
     Indication: HYPERTENSION
     Dates: start: 20000101, end: 20091229
  2. NORSPAN [Suspect]
     Indication: BACK PAIN
     Dosage: 840 UG, 1/WEEK TRANSDERMAL PATCH
     Route: 062
     Dates: start: 20091215, end: 20091229
  3. BERLOSIN [METAMIZOLE SODIUM] [Concomitant]
  4. EMBOLEX [Concomitant]
  5. METOCLOPRAMIDE [METOCLOPRAMIDE HYDROCHLORIDE] [Concomitant]

REACTIONS (4)
  - BACK PAIN [None]
  - HYPOTENSION [None]
  - NAUSEA [None]
  - VOMITING [None]
